FAERS Safety Report 10339573 (Version 1)
Quarter: 2014Q3

REPORT INFORMATION
  Report Type: Spontaneous
  Country: US (occurrence: None)
  Receive Date: 20140723
  Receipt Date: 20140723
  Transmission Date: 20150326
  Serious: Yes (Other)
  Sender: FDA-Public Use
  Company Number: None

PATIENT
  Age: 55 Year
  Sex: Female
  Weight: 59.1 kg

DRUGS (1)
  1. FETZIMA [Suspect]
     Active Substance: LEVOMILNACIPRAN HYDROCHLORIDE
     Indication: MAJOR DEPRESSION
     Dosage: 7/16. 17 + 18 ??A SINGLE 20 MG CAPSULE DAILY ORAL
     Route: 048

REACTIONS (7)
  - Agitation [None]
  - Confusional state [None]
  - Myalgia [None]
  - Muscle spasms [None]
  - Gait disturbance [None]
  - Anxiety [None]
  - Vision blurred [None]

NARRATIVE: CASE EVENT DATE: 20140717
